FAERS Safety Report 8814857 (Version 1)
Quarter: 2012Q4

REPORT INFORMATION
  Report Type: 
  Country: FR (occurrence: FR)
  Receive Date: 20120928
  Receipt Date: 20120928
  Transmission Date: 20130627
  Serious: Yes (Hospitalization)
  Sender: FDA-Public Use
  Company Number: FR-MERCK-2012SP009662

PATIENT
  Age: 51 Year
  Sex: Male

DRUGS (8)
  1. NOXAFIL [Suspect]
     Indication: ORAL LICHEN PLANUS
     Dosage: 200 mg, TID
     Dates: start: 20110715, end: 20110926
  2. CYMEVAN IV [Suspect]
     Indication: CYTOMEGALOVIRUS VIRAEMIA
     Dosage: 250 mg, QD
     Route: 048
     Dates: start: 20110715, end: 20110720
  3. CYMEVAN IV [Suspect]
     Dosage: 250 mg, QD
     Route: 048
     Dates: start: 20110812, end: 20110826
  4. VIVAGLOBIN [Suspect]
     Indication: CHRONIC LYMPHOCYTIC LEUKAEMIA
     Dosage: 1 DF, QW
     Route: 042
     Dates: start: 20111025
  5. ACTHIB [Suspect]
     Indication: IMMUNISATION
     Dates: start: 20110926, end: 20110926
  6. ACTHIB [Suspect]
     Dates: start: 20111108, end: 20111108
  7. CORTANCYL [Concomitant]
     Indication: ACUTE GRAFT VERSUS HOST DISEASE
     Dosage: 30 mg, BID
     Dates: start: 20110715, end: 20110926
  8. FOSCAVIR [Concomitant]
     Indication: PRODUCT USED FOR UNKNOWN INDICATION

REACTIONS (3)
  - Thrombocytopenia [Recovered/Resolved]
  - Anaemia [Recovered/Resolved]
  - Leukopenia [Recovered/Resolved]
